FAERS Safety Report 9816465 (Version 1)
Quarter: 2014Q1

REPORT INFORMATION
  Report Type: Report from Study
  Country: JP (occurrence: JP)
  Receive Date: 20140114
  Receipt Date: 20140114
  Transmission Date: 20141002
  Serious: Yes (Death, Other)
  Sender: FDA-Public Use
  Company Number: JP-TAKEDA-2014TJP000520

PATIENT
  Age: 66 Year
  Sex: Male
  Weight: 67 kg

DRUGS (8)
  1. LANSOPRAZOLE [Suspect]
     Indication: PROPHYLAXIS AGAINST GASTROINTESTINAL ULCER
     Dosage: 15 MG, QD
     Route: 048
     Dates: start: 20120531, end: 20130121
  2. BLOPRESS [Concomitant]
     Dosage: 4 MG, 1 DAYS
     Route: 048
     Dates: end: 20130121
  3. ACTOS [Concomitant]
     Dosage: 30 MG, 1 DAYS
     Route: 048
     Dates: end: 20130121
  4. LOXONIN [Concomitant]
     Indication: CANCER PAIN
     Dosage: 60 MG, 1 DAYS
     Route: 048
     Dates: start: 20120319, end: 20130121
  5. NIFEDIPINE CR [Concomitant]
     Dosage: 20 MG, MG
     Route: 048
     Dates: end: 20130121
  6. BEZATOL SR [Concomitant]
     Dosage: 400 MG, 1 DAYS
     Route: 048
     Dates: end: 20130121
  7. DAONIL [Concomitant]
     Dosage: 2.5 MG, 1 DAYS
     Route: 048
     Dates: end: 20130121
  8. TS-1                               /01593501/ [Concomitant]
     Dosage: 120 MG, 1 DAYS
     Route: 048

REACTIONS (2)
  - Ductal adenocarcinoma of pancreas [Fatal]
  - Condition aggravated [Fatal]
